FAERS Safety Report 7646657-3 (Version None)
Quarter: 2011Q3

REPORT INFORMATION
  Report Type: 
  Country: None (occurrence: None)
  Receive Date: 20110801
  Receipt Date: 20090804
  Transmission Date: 20111222
  Serious: Yes (Other)
  Sender: FDA-Public Use
  Company Number: US-BAYER-200827427NA

PATIENT
  Age: 59 Year
  Sex: Female
  Weight: 109 kg

DRUGS (54)
  1. OMNISCAN [Suspect]
     Indication: ANGIOGRAM
  2. LEVOTHYROXINE SODIUM [Concomitant]
  3. PROGRAF [Concomitant]
  4. VISIPAQUE [Concomitant]
     Indication: AORTOGRAM
     Dates: start: 20050616, end: 20050616
  5. TEMAZEPAM [Concomitant]
  6. EVISTA [Concomitant]
  7. ZOLOFT [Concomitant]
  8. SYNTHROID [Concomitant]
  9. PRILOSEC [Concomitant]
  10. PARICALCITOL [Concomitant]
  11. PERCOCET [Concomitant]
  12. OMNISCAN [Suspect]
     Indication: NUCLEAR MAGNETIC RESONANCE IMAGING
  13. SENSIPAR [Concomitant]
  14. PHOSLO [Concomitant]
  15. ZOCOR [Concomitant]
  16. EPOGEN [Concomitant]
  17. LIPITOR [Concomitant]
  18. RESTORIL [Concomitant]
  19. PROHANCE [Suspect]
     Indication: NUCLEAR MAGNETIC RESONANCE IMAGING
  20. CILOSTAZOL [Concomitant]
  21. INSULIN [Concomitant]
  22. DIATX [Concomitant]
  23. LORATADINE [Concomitant]
  24. MULTIHANCE [Suspect]
     Indication: NUCLEAR MAGNETIC RESONANCE IMAGING ABDOMINAL
     Route: 042
     Dates: start: 20050707, end: 20050707
  25. GADOLINIUM IN UNSPECIFIED DRUG [Suspect]
     Dates: start: 19980706, end: 19980706
  26. ASPIRIN [Concomitant]
  27. ZEMPLAR [Concomitant]
  28. TIMOLOL MALEATE [Concomitant]
  29. MAGNEVIST [Suspect]
     Indication: NUCLEAR MAGNETIC RESONANCE IMAGING
     Dates: start: 19980824, end: 19980824
  30. OPTIMARK [Suspect]
     Indication: ANGIOGRAM
  31. EVISTA [Concomitant]
  32. PREDNISONE TAB [Concomitant]
  33. HOMATROPINE [Concomitant]
  34. GADOLINIUM IN UNSPECIFIED DRUG [Suspect]
     Dates: start: 20020820, end: 20020820
  35. EPOGEN [Concomitant]
  36. NEPHROCAPS [Concomitant]
  37. PLAVIX [Concomitant]
  38. HUMALOG [Concomitant]
  39. PROAMATINE [Concomitant]
  40. TRICOR [Concomitant]
  41. FLONASE [Concomitant]
  42. MAGNEVIST [Suspect]
  43. PROHANCE [Suspect]
     Indication: ANGIOGRAM
  44. GADOLINIUM IN UNSPECIFIED DRUG [Suspect]
     Dosage: STATED BY PATIENT IN A PHYSICIAN'S NOTE; NO RADIOLOGY REPORT; NOT STATED IN PFS
     Dates: start: 20070801, end: 20070801
  45. IRON [IRON] [Concomitant]
  46. CELLCEPT [Concomitant]
     Indication: PROPHYLAXIS AGAINST TRANSPLANT REJECTION
  47. RENAGEL [Concomitant]
  48. CELEBREX [Concomitant]
  49. MIACALCIN [Concomitant]
  50. COLACE [Concomitant]
  51. IBUPROFEN [Concomitant]
  52. MAGNEVIST [Suspect]
     Indication: ANGIOGRAM
  53. OPTIMARK [Suspect]
     Indication: NUCLEAR MAGNETIC RESONANCE IMAGING
  54. MULTIHANCE [Suspect]
     Indication: NUCLEAR MAGNETIC RESONANCE IMAGING

REACTIONS (15)
  - NEPHROGENIC SYSTEMIC FIBROSIS [None]
  - PAIN [None]
  - ASTHENIA [None]
  - SKIN TIGHTNESS [None]
  - FIBROSIS [None]
  - GRIEF REACTION [None]
  - SKIN DISCOLOURATION [None]
  - QUALITY OF LIFE DECREASED [None]
  - MUSCULOSKELETAL STIFFNESS [None]
  - JOINT RANGE OF MOTION DECREASED [None]
  - ANXIETY [None]
  - EMOTIONAL DISTRESS [None]
  - MOBILITY DECREASED [None]
  - MUSCLE TIGHTNESS [None]
  - OEDEMA PERIPHERAL [None]
